FAERS Safety Report 13362949 (Version 1)
Quarter: 2017Q1

REPORT INFORMATION
  Report Type: Spontaneous
  Country: US (occurrence: US)
  Receive Date: 20170322
  Receipt Date: 20170322
  Transmission Date: 20170429
  Serious: Yes (Hospitalization, Other)
  Sender: FDA-Public Use
  Company Number: None

PATIENT
  Age: 44 Year
  Sex: Male
  Weight: 87.75 kg

DRUGS (2)
  1. OSELTAMIVIR PHOS 75 MG CAPSULE [Suspect]
     Active Substance: OSELTAMIVIR PHOSPHATE
     Indication: INFLUENZA
     Dosage: ?          QUANTITY:1 CAPSULE(S);?
     Route: 048
     Dates: start: 20170315, end: 20170316
  2. LISINOPRIL. [Concomitant]
     Active Substance: LISINOPRIL

REACTIONS (8)
  - Syncope [None]
  - Face injury [None]
  - Dizziness [None]
  - Loss of consciousness [None]
  - Lip injury [None]
  - Fall [None]
  - Tooth fracture [None]
  - Balance disorder [None]

NARRATIVE: CASE EVENT DATE: 20170316
